FAERS Safety Report 11106515 (Version 1)
Quarter: 2015Q2

REPORT INFORMATION
  Report Type: Spontaneous
  Country: US (occurrence: None)
  Receive Date: 20150511
  Receipt Date: 20150511
  Transmission Date: 20150821
  Serious: No
  Sender: FDA-Public Use
  Company Number: None

PATIENT
  Age: 49 Year
  Sex: Female

DRUGS (1)
  1. TECFIDERA [Suspect]
     Active Substance: DIMETHYL FUMARATE
     Indication: MULTIPLE SCLEROSIS
     Route: 048
     Dates: start: 20150408, end: 20150505

REACTIONS (5)
  - Migraine [None]
  - Gastrointestinal disorder [None]
  - Therapy cessation [None]
  - Flushing [None]
  - Nausea [None]

NARRATIVE: CASE EVENT DATE: 201504
